FAERS Safety Report 4647771-7 (Version None)
Quarter: 2005Q2

REPORT INFORMATION
  Report Type: 
  Country: None (occurrence: None)
  Receive Date: 20050426
  Receipt Date: 20050412
  Transmission Date: 20051028
  Serious: Yes (Hospitalization)
  Sender: FDA-Public Use
  Company Number: 03P-087-0245480-00

PATIENT
  Age: 62 Year
  Sex: Female

DRUGS (9)
  1. KALETRA [Suspect]
     Indication: HIV INFECTION
     Dosage: 3 CAPSULE, 1 IN 1 D, PER ORAL
     Route: 048
     Dates: start: 20031216, end: 20031221
  2. STAVUDINE [Concomitant]
  3. LAMIVUDINE [Concomitant]
  4. MEIPRIZOLE [Concomitant]
  5. RISPERIDONE [Concomitant]
  6. LORAZEPAM [Concomitant]
  7. SUCRALFATE [Concomitant]
  8. MAGNESIUM OXIDE [Concomitant]
  9. NELFINAVIR MESILATE [Concomitant]

REACTIONS (2)
  - BLOOD PRESSURE DECREASED [None]
  - SICK SINUS SYNDROME [None]
